FAERS Safety Report 7388121-5 (Version None)
Quarter: 2011Q2

REPORT INFORMATION
  Report Type: 
  Country: None (occurrence: None)
  Receive Date: 20110401
  Receipt Date: 20110322
  Transmission Date: 20111010
  Serious: Yes (Other)
  Sender: FDA-Public Use
  Company Number: US-BAXTER-2011BH005600

PATIENT
  Age: 7 Year
  Sex: Female

DRUGS (2)
  1. GAMMAGARD LIQUID [Suspect]
     Indication: DERMATOMYOSITIS
     Route: 065
  2. GAMMAGARD LIQUID [Suspect]
     Indication: OFF LABEL USE
     Route: 065

REACTIONS (10)
  - ODYNOPHAGIA [None]
  - NECK PAIN [None]
  - MENINGISM [None]
  - HEADACHE [None]
  - ORAL PAIN [None]
  - DYSPNOEA [None]
  - NAUSEA [None]
  - PAIN [None]
  - RASH ERYTHEMATOUS [None]
  - VERTIGO [None]
